FAERS Safety Report 17889992 (Version 1)
Quarter: 2020Q2

REPORT INFORMATION
  Report Type: Spontaneous
  Country: JP (occurrence: JP)
  Receive Date: 20200612
  Receipt Date: 20200612
  Transmission Date: 20200714
  Serious: Yes (Other)
  Sender: FDA-Public Use
  Company Number: JP-JNJFOC-20200609537

PATIENT
  Age: 69 Year
  Sex: Female

DRUGS (2)
  1. REMINYL [Suspect]
     Active Substance: GALANTAMINE
     Indication: DEMENTIA
     Dosage: UNKNOWN
     Route: 048
  2. REMINYL [Suspect]
     Active Substance: GALANTAMINE
     Route: 048

REACTIONS (6)
  - Dementia [Unknown]
  - Speech disorder [Unknown]
  - Renal impairment [Unknown]
  - Urinary incontinence [Unknown]
  - Mobility decreased [Unknown]
  - Fall [Unknown]
